FAERS Safety Report 9837860 (Version 1)
Quarter: 2013Q4

REPORT INFORMATION
  Report Type: Spontaneous
  Country: US (occurrence: None)
  Receive Date: 20131205
  Receipt Date: 20131205
  Transmission Date: 20140711
  Serious: No
  Sender: FDA-Public Use
  Company Number: 163-POMAL-13104443

PATIENT
  Age: 70 Year
  Sex: Female
  Weight: 56.7 kg

DRUGS (4)
  1. POMALYST (POMALIDOMIDE) (4 MILLIGRAM CAPSULES) [Suspect]
     Indication: PLASMA CELL MYELOMA
     Dosage: 4NGM 1 IN 1 D, PO
     Route: 048
     Dates: start: 20130702
  2. CARFILZOMIB (CARFILZOMIB) [Concomitant]
  3. SYNTHROID (LEVOTHYROXINE SODIUM) [Concomitant]
  4. VALTREX (VALACICLOVIR HYDROCHLORIDE) [Concomitant]

REACTIONS (4)
  - Somnolence [None]
  - Malaise [None]
  - Insomnia [None]
  - Drug ineffective [None]
